FAERS Safety Report 21305612 (Version 2)
Quarter: 2023Q1

REPORT INFORMATION
  Report Type: Spontaneous
  Country: ES (occurrence: ES)
  Receive Date: 20220908
  Receipt Date: 20230216
  Transmission Date: 20230418
  Serious: Yes (Other)
  Sender: FDA-Public Use
  Company Number: ES-SUN PHARMACEUTICAL INDUSTRIES LTD-2022RR-340118

PATIENT
  Age: 75 Year
  Sex: Male

DRUGS (10)
  1. CLOPIDOGREL [Interacting]
     Active Substance: CLOPIDOGREL BISULFATE
     Indication: Cerebrovascular accident
     Dosage: 75 MILLIGRAM, UNK
     Route: 065
  2. METFORMIN [Interacting]
     Active Substance: METFORMIN HYDROCHLORIDE
     Indication: Diabetes mellitus
     Dosage: 1 GRAM, BID
     Route: 065
  3. REPAGLINIDE [Interacting]
     Active Substance: REPAGLINIDE
     Indication: Diabetes mellitus
     Dosage: 2 MILLIGRAM, 2/2/1
     Route: 065
  4. PREDNISONE [Suspect]
     Active Substance: PREDNISONE
     Indication: Gastrointestinal inflammation
     Dosage: UNK, 0.5/0/5
     Route: 065
  5. FOLIC ACID [Concomitant]
     Active Substance: FOLIC ACID
     Indication: Hypovitaminosis
     Dosage: 5 MILLIGRAM, DAILY
     Route: 065
  6. Vidagliptin [Concomitant]
     Indication: Diabetes mellitus
     Dosage: 50 MILLIGRAM, DAILY
     Route: 065
  7. ACETAMINOPHEN [Concomitant]
     Active Substance: ACETAMINOPHEN
     Indication: Pain
     Dosage: 1000 MILLIGRAM, ON REQUEST
     Route: 065
  8. DONEPEZIL [Concomitant]
     Active Substance: DONEPEZIL
     Indication: Dementia
     Dosage: 10 MILLIGRAM, DAILY
     Route: 065
  9. PANTOPRAZOLE [Concomitant]
     Active Substance: PANTOPRAZOLE
     Indication: Gastrointestinal disorder prophylaxis
     Dosage: 40 MILLIGRAM, DAILY
     Route: 065
  10. CALCIUM\CHOLECALCIFEROL [Concomitant]
     Active Substance: CALCIUM\CHOLECALCIFEROL
     Indication: Product used for unknown indication
     Dosage: 1,000 MG/800 UL, 1/0/0
     Route: 065

REACTIONS (5)
  - Drug interaction [Unknown]
  - Hyperglycaemia [Unknown]
  - Diarrhoea [Recovering/Resolving]
  - Abdominal pain [Recovering/Resolving]
  - Anal incontinence [Recovering/Resolving]
